FAERS Safety Report 5134746-7 (Version None)
Quarter: 2006Q4

REPORT INFORMATION
  Report Type: 
  Country: None (occurrence: None)
  Receive Date: 20061019
  Receipt Date: 20061010
  Transmission Date: 20070319
  Serious: Yes (Other)
  Sender: FDA-Public Use
  Company Number: 2006SP004202

PATIENT
  Age: 45 Year
  Sex: Male

DRUGS (2)
  1. PEG-INTRON [Suspect]
     Indication: HEPATITIS C
     Dates: start: 20060912
  2. REBETOL [Suspect]
     Indication: HEPATITIS C
     Dosage: PO
     Route: 048
     Dates: start: 20060912

REACTIONS (10)
  - ABDOMINAL PAIN UPPER [None]
  - BACK PAIN [None]
  - DEHYDRATION [None]
  - DIARRHOEA [None]
  - FEELING JITTERY [None]
  - INFLUENZA LIKE ILLNESS [None]
  - NERVOUSNESS [None]
  - NOCTURIA [None]
  - PAIN [None]
  - VOMITING [None]
